FAERS Safety Report 4986340-6 (Version None)
Quarter: 2006Q2

REPORT INFORMATION
  Report Type: 
  Country: None (occurrence: None)
  Receive Date: 20060428
  Receipt Date: 20060125
  Transmission Date: 20061013
  Serious: Yes (Death, Hospitalization)
  Sender: FDA-Public Use
  Company Number: US-GLAXOSMITHKLINE-A0590913A

PATIENT
  Age: 56 Year
  Sex: Female

DRUGS (1)
  1. WELLBUTRIN [Suspect]
     Indication: DEPRESSION
     Route: 048
     Dates: start: 20050901

REACTIONS (5)
  - ABNORMAL BEHAVIOUR [None]
  - CHEST PAIN [None]
  - INSOMNIA [None]
  - PALLOR [None]
  - WEIGHT INCREASED [None]
